FAERS Safety Report 22020388 (Version 1)
Quarter: 2023Q1

REPORT INFORMATION
  Report Type: Spontaneous
  Country: US (occurrence: None)
  Receive Date: 20230217
  Receipt Date: 20230217
  Transmission Date: 20230418
  Serious: Yes (Hospitalization)
  Sender: FDA-Public Use
  Company Number: None

PATIENT
  Age: 49 Year
  Sex: Male
  Weight: 107.3 kg

DRUGS (1)
  1. VANCOMYCIN HYDROCHLORIDE [Suspect]
     Active Substance: VANCOMYCIN HYDROCHLORIDE
     Indication: Pyrexia
     Dosage: OTHER FREQUENCY : ONCE;?
     Route: 041
     Dates: start: 20230211, end: 20230211

REACTIONS (5)
  - Nausea [None]
  - Flushing [None]
  - Cough [None]
  - Dysphonia [None]
  - Drug hypersensitivity [None]

NARRATIVE: CASE EVENT DATE: 20230211
